FAERS Safety Report 5695908-3 (Version None)
Quarter: 2008Q2

REPORT INFORMATION
  Report Type: 
  Country: None (occurrence: None)
  Receive Date: 20080407
  Receipt Date: 20080327
  Transmission Date: 20081010
  Serious: Yes (Hospitalization)
  Sender: FDA-Public Use
  Company Number: US-JNJFOC-20080305097

PATIENT
  Sex: Female

DRUGS (6)
  1. DURAGESIC-100 [Suspect]
     Route: 062
  2. DURAGESIC-100 [Suspect]
     Route: 062
  3. DURAGESIC-100 [Suspect]
     Indication: PAIN
     Route: 062
  4. FENTANYL TRANSDERMAL SYSTEM [Suspect]
     Indication: PAIN
     Route: 062
  5. TOPAMAX [Concomitant]
     Route: 048
  6. TOPAMAX [Concomitant]
     Indication: MIGRAINE
     Route: 048

REACTIONS (5)
  - CELLULITIS [None]
  - DRUG DOSE OMISSION [None]
  - HEADACHE [None]
  - INADEQUATE ANALGESIA [None]
  - NAUSEA [None]
